FAERS Safety Report 4407036-5 (Version None)
Quarter: 2004Q3

REPORT INFORMATION
  Report Type: 
  Country: None (occurrence: None)
  Receive Date: 20040715
  Receipt Date: 20040628
  Transmission Date: 20050211
  Serious: Yes (Hospitalization)
  Sender: FDA-Public Use
  Company Number: DE-JNJFOC-20040404543

PATIENT
  Age: 74 Year
  Sex: Female
  Weight: 70 kg

DRUGS (9)
  1. LYRINEL (OXYBUTYNIN HYDROCHLORIDE) TABLETS [Suspect]
     Indication: HYPERTONIC BLADDER
     Dosage: 10 MG, 1 IN 1 DAY, ORAL
     Route: 048
     Dates: start: 20040304, end: 20040416
  2. METOPROLOL SUCCINATE [Concomitant]
  3. TIKLYD (TICLOPIDINE HYDROCLORIDE) [Concomitant]
  4. SORTIS (ATORVASTATIN) [Concomitant]
  5. ADALAT RET (NIFEDIPINE) [Concomitant]
  6. ACETYLSALICYLIC ACID SRT [Concomitant]
  7. VALPROIC ACID [Concomitant]
  8. AMLODIPINE [Concomitant]
  9. TELMISARTAN (TELMISARTAN) [Concomitant]

REACTIONS (8)
  - ANAEMIA [None]
  - COAGULOPATHY [None]
  - HAEMATOMA [None]
  - HEART RATE DECREASED [None]
  - LUNG DISORDER [None]
  - SCAR [None]
  - THROMBOCYTOPENIA [None]
  - URINARY TRACT INFECTION [None]
